FAERS Safety Report 7532288-2 (Version None)
Quarter: 2011Q2

REPORT INFORMATION
  Report Type: 
  Country: None (occurrence: None)
  Receive Date: 20110607
  Receipt Date: 20110607
  Transmission Date: 20111010
  Serious: Yes (Hospitalization)
  Sender: FDA-Public Use
  Company Number: None

PATIENT
  Age: 69 Year
  Sex: Male
  Weight: 88.9957 kg

DRUGS (14)
  1. DEXAMETHASONE [Concomitant]
  2. PACLITAXEL [Suspect]
     Indication: LUNG NEOPLASM MALIGNANT
     Dosage: 200 MG/M2 X 1
     Dates: start: 20110602, end: 20110602
  3. ALOXI [Concomitant]
  4. BELINOSTAT [Suspect]
     Indication: LUNG CARCINOMA CELL TYPE UNSPECIFIED STAGE IV
     Dosage: 800 MG/ M2 DAILY
     Dates: start: 20110531, end: 20110602
  5. ZOFRAN [Concomitant]
  6. BEVACIZUMAB [Suspect]
     Indication: LUNG NEOPLASM MALIGNANT
     Dosage: 15 MG/M2
     Dates: start: 20110602, end: 20110602
  7. OXYCONTIN [Concomitant]
  8. CARBOPLATIN [Suspect]
     Indication: LUNG NEOPLASM MALIGNANT
     Dosage: AUC 6
     Dates: start: 20110602, end: 20110602
  9. KYTRIL [Concomitant]
  10. PEPCID [Concomitant]
  11. LACTALOSE [Concomitant]
  12. BENADRYL [Concomitant]
  13. PERCOCET [Concomitant]
  14. DILANTIN [Concomitant]

REACTIONS (8)
  - HYPERHIDROSIS [None]
  - BLOOD PRESSURE DECREASED [None]
  - FATIGUE [None]
  - DYSPNOEA [None]
  - RESPIRATORY RATE INCREASED [None]
  - VOMITING [None]
  - HYPOPNOEA [None]
  - HEART RATE INCREASED [None]
